FAERS Safety Report 16701441 (Version 2)
Quarter: 2019Q3

REPORT INFORMATION
  Report Type: Report from Study
  Country: DE (occurrence: DE)
  Receive Date: 20190814
  Receipt Date: 20190822
  Transmission Date: 20191004
  Serious: Yes (Other)
  Sender: FDA-Public Use
  Company Number: DE-GLAXOSMITHKLINE-PHNU2003DE03234

PATIENT
  Age: 67 Year
  Sex: Female
  Weight: 80 kg

DRUGS (35)
  1. ATROPINE. [Suspect]
     Active Substance: ATROPINE
     Indication: SURGERY
     Dosage: .25 MG, SINGLE
     Route: 042
     Dates: start: 20010904, end: 20010904
  2. PROPAFENONE. [Suspect]
     Active Substance: PROPAFENONE
     Dosage: 150 MG, BID
     Route: 048
     Dates: start: 20010904, end: 20010909
  3. NOVALGIN (DIPYRONE) [Suspect]
     Active Substance: DIPYRONE
     Indication: PAIN
     Dosage: .25 G, SINGLE
     Route: 042
     Dates: start: 20010904, end: 20010904
  4. NEOSTIGMINE. [Suspect]
     Active Substance: NEOSTIGMINE METHYLSULFATE
     Indication: PRODUCT USED FOR UNKNOWN INDICATION
     Dosage: 2DF/DAY
     Route: 042
  5. MIDAZOLAM [Suspect]
     Active Substance: MIDAZOLAM HYDROCHLORIDE
     Indication: STUPOR
     Dosage: UNK
     Route: 042
     Dates: start: 20010910, end: 20010910
  6. FENTANYL. [Suspect]
     Active Substance: FENTANYL
     Indication: STUPOR
     Dosage: UNK
     Route: 042
     Dates: start: 20010910, end: 20010910
  7. BEPANTHEN ROCHE (DEXPANTHENOL) [Suspect]
     Active Substance: DEXPANTHENOL
     Indication: PRODUCT USED FOR UNKNOWN INDICATION
     Dosage: 2DF/DAY
     Route: 042
  8. GELAFUNDIN [Concomitant]
     Dosage: UNK
     Route: 042
     Dates: start: 20010910, end: 20010910
  9. CISATRACURIUM BESYLATE. [Suspect]
     Active Substance: CISATRACURIUM BESYLATE
     Indication: STUPOR
     Dosage: UNK
     Route: 042
     Dates: start: 20010910, end: 20010910
  10. DIGITOXIN [Suspect]
     Active Substance: DIGITOXIN
     Dosage: .07 MG, QD
     Route: 048
     Dates: start: 20010904
  11. SUPRATONIN [Suspect]
     Active Substance: AMEZINIUM METILSULFATE
     Indication: PRODUCT USED FOR UNKNOWN INDICATION
     Dosage: 2.5 MG, SINGLE
     Route: 042
     Dates: start: 20010910, end: 20010910
  12. PROPAFENONE. [Suspect]
     Active Substance: PROPAFENONE
     Indication: ARRHYTHMIA
     Dosage: UNK, IRD
     Route: 048
     Dates: end: 20010903
  13. NAVOBAN [Suspect]
     Active Substance: TROPISETRON HYDROCHLORIDE
     Indication: PROPHYLAXIS OF NAUSEA AND VOMITING
     Dosage: 2 MG, SINGLE
     Route: 042
     Dates: start: 20010910, end: 20010910
  14. DIGITOXIN [Suspect]
     Active Substance: DIGITOXIN
     Indication: CARDIAC FAILURE
     Dosage: UNK
     Route: 048
     Dates: end: 20010903
  15. SUFENTA [Suspect]
     Active Substance: SUFENTANIL CITRATE
     Indication: STUPOR
     Dosage: UNK
     Route: 042
     Dates: start: 20010910, end: 20010910
  16. PROPOFOL. [Suspect]
     Active Substance: PROPOFOL
     Indication: STUPOR
     Dosage: UNK
     Route: 042
     Dates: start: 20010910, end: 20010910
  17. CALCIUM BETA [Concomitant]
     Indication: BLOOD CALCIUM DECREASED
     Dosage: UNK, IRD
     Route: 048
  18. RINGERS SOLUTION [Concomitant]
     Active Substance: CALCIUM CHLORIDE\POTASSIUM CHLORIDE\SODIUM CHLORIDE
     Dosage: UNK
     Route: 042
     Dates: start: 20010904, end: 20010904
  19. DIMETINDENE MALEATE [Suspect]
     Active Substance: DIMETHINDENE MALEATE
     Indication: PREMEDICATION
     Dosage: 8 ML, SINGLE
     Route: 042
     Dates: start: 20010910, end: 20010910
  20. PIRACETAM [Suspect]
     Active Substance: PIRACETAM
     Indication: PRODUCT USED FOR UNKNOWN INDICATION
     Dosage: UNK, IRD
     Route: 048
     Dates: end: 20010903
  21. RYTMONORM [Suspect]
     Active Substance: PROPAFENONE
     Indication: ARRHYTHMIA
     Dosage: 150 MG, BID
     Route: 048
     Dates: start: 20010910
  22. ISICOM [Suspect]
     Active Substance: CARBIDOPA\LEVODOPA
     Dosage: 50 MG, TID
     Route: 048
     Dates: start: 20010904, end: 20010909
  23. NACOM (CARBIDOPA + LEVODOPA) [Suspect]
     Active Substance: CARBIDOPA\LEVODOPA
     Indication: PARKINSON^S DISEASE
     Dosage: 50 MG, TID
     Route: 048
     Dates: start: 20010910
  24. PIRACETAM [Suspect]
     Active Substance: PIRACETAM
     Dosage: 1 DF, BID
     Route: 048
     Dates: start: 20010904, end: 20010909
  25. ISICOM [Suspect]
     Active Substance: CARBIDOPA\LEVODOPA
     Indication: PARKINSON^S DISEASE
     Dosage: UNK
     Route: 048
     Dates: end: 20010903
  26. THIOPENTAL [Suspect]
     Active Substance: THIOPENTAL
     Indication: STUPOR
     Dosage: 250 ML, SINGLE
     Route: 042
     Dates: start: 20010904, end: 20010904
  27. RINGERS SOLUTION [Concomitant]
     Active Substance: CALCIUM CHLORIDE\POTASSIUM CHLORIDE\SODIUM CHLORIDE
     Dosage: UNK
     Route: 042
     Dates: start: 20010910, end: 20010910
  28. ATROPINE. [Suspect]
     Active Substance: ATROPINE
     Dosage: .25 MG, SINGLE
     Route: 042
     Dates: start: 20010910, end: 20010910
  29. NORMABRAIN [Suspect]
     Active Substance: PIRACETAM
     Indication: PRODUCT USED FOR UNKNOWN INDICATION
     Dosage: UNK
     Route: 048
     Dates: start: 20010910
  30. KETAMINE [Suspect]
     Active Substance: KETAMINE
     Indication: STUPOR
     Dosage: UNK
     Route: 042
     Dates: start: 20010910, end: 20010910
  31. REMIFENTANIL [Suspect]
     Active Substance: REMIFENTANIL
     Indication: STUPOR
     Dosage: .45 G, SINGLE
     Route: 042
     Dates: start: 20010904, end: 20010904
  32. RANITIC [Suspect]
     Active Substance: RANITIDINE HYDROCHLORIDE
     Indication: PRODUCT USED FOR UNKNOWN INDICATION
     Dosage: 100 ML, SINGLE
     Route: 042
     Dates: start: 20010910, end: 20010910
  33. NAROPIN [Suspect]
     Active Substance: ROPIVACAINE HYDROCHLORIDE
     Indication: STUPOR
     Dosage: UNK
     Route: 042
     Dates: start: 20010910, end: 20010910
  34. SPIZEF (CEFOTIAM HYDROCHLORIDE) [Suspect]
     Active Substance: CEFOTIAM HYDROCHLORIDE
     Indication: PRODUCT USED FOR UNKNOWN INDICATION
     Dosage: 2 G, TID
     Route: 042
  35. JONOSTERIL [Concomitant]
     Dosage: 2500ML/DAY
     Route: 042
     Dates: start: 20010910

REACTIONS (8)
  - Petechiae [Recovering/Resolving]
  - Pyrexia [Recovered/Resolved]
  - Blister [Recovering/Resolving]
  - Stevens-Johnson syndrome [Recovering/Resolving]
  - Erythema [Recovering/Resolving]
  - Toxic epidermal necrolysis [Recovering/Resolving]
  - Rash macular [Recovering/Resolving]
  - Hysterectomy [Unknown]

NARRATIVE: CASE EVENT DATE: 20010910
